FAERS Safety Report 9308092 (Version 4)
Quarter: 2014Q2

REPORT INFORMATION
  Report Type: Spontaneous
  Country: US (occurrence: US)
  Receive Date: 20130524
  Receipt Date: 20140606
  Transmission Date: 20141212
  Serious: Yes (Hospitalization, Other)
  Sender: FDA-Public Use
  Company Number: US-009507513-1305USA012234

PATIENT
  Sex: Male

DRUGS (1)
  1. PROPECIA [Suspect]
     Indication: ALOPECIA
     Dosage: 1 MG, UNK
     Route: 048
     Dates: start: 19990210, end: 20050605

REACTIONS (21)
  - Coronary artery bypass [Unknown]
  - Anxiety [Unknown]
  - Penis injury [Unknown]
  - Hormone level abnormal [Unknown]
  - Brain injury [Unknown]
  - Depression [Unknown]
  - Erectile dysfunction [Unknown]
  - Sexual dysfunction [Unknown]
  - Loss of libido [Not Recovered/Not Resolved]
  - Hypertension [Unknown]
  - Essential tremor [Unknown]
  - Diarrhoea [Recovered/Resolved]
  - Pain [Unknown]
  - Coronary artery disease [Unknown]
  - Major depression [Unknown]
  - Major depression [Unknown]
  - Psychosexual disorder [Unknown]
  - LDL/HDL ratio increased [Unknown]
  - High density lipoprotein decreased [Unknown]
  - Diarrhoea [Recovered/Resolved]
  - Vertigo positional [Unknown]
